FAERS Safety Report 4337880-4 (Version None)
Quarter: 2004Q2

REPORT INFORMATION
  Report Type: 
  Country: None (occurrence: None)
  Receive Date: 20040408
  Receipt Date: 20040329
  Transmission Date: 20050107
  Serious: Yes (Hospitalization)
  Sender: FDA-Public Use
  Company Number: JP-JNJFOC-20040305329

PATIENT
  Age: 65 Year
  Sex: Male
  Weight: 68 kg

DRUGS (14)
  1. REMICADE [Suspect]
     Indication: RHEUMATOID ARTHRITIS
     Dosage: 3 MG/KG, 1 IN 1 AS NECESSARY, INTRAVENOUS DRIP
     Route: 041
     Dates: start: 20031010, end: 20031010
  2. REMICADE [Suspect]
     Indication: RHEUMATOID ARTHRITIS
     Dosage: 3 MG/KG, 1 IN 1 AS NECESSARY, INTRAVENOUS DRIP
     Route: 041
     Dates: start: 20031020, end: 20031023
  3. REMICADE [Suspect]
     Indication: RHEUMATOID ARTHRITIS
     Dosage: 3 MG/KG, 1 IN 1 AS NECESSARY, INTRAVENOUS DRIP
     Route: 041
     Dates: start: 20031120, end: 20031120
  4. REMICADE [Suspect]
     Indication: RHEUMATOID ARTHRITIS
     Dosage: 3 MG/KG, 1 IN 1 AS NECESSARY, INTRAVENOUS DRIP
     Route: 041
     Dates: start: 20040116, end: 20040116
  5. REMICADE [Suspect]
     Indication: RHEUMATOID ARTHRITIS
     Dosage: 3 MG/KG, 1 IN 1 AS NECESSARY, INTRAVENOUS DRIP
     Route: 041
     Dates: start: 20040312, end: 20040312
  6. METHOTREXATE (CAPSULES) METHOTREXATE [Concomitant]
  7. PREDONINE (TABLETS) PREDNISOLONE [Concomitant]
  8. RIMATIL (BUCILLAMINE) TABLETS [Concomitant]
  9. FOLIAMIN (FOLIC ACID) TABLETS [Concomitant]
  10. MUCOSTA (REBAMIPIDE) TABLETS [Concomitant]
  11. ARTIST TABLETS (CARVEDILOL0 TABLETS [Concomitant]
  12. ARTIST TABLETS (CARVEDILOL) TABLETS [Concomitant]
  13. DIOVAN [Concomitant]
  14. RHEUMATREX [Concomitant]

REACTIONS (8)
  - ARTERIAL OCCLUSIVE DISEASE [None]
  - BURNING SENSATION [None]
  - DRUG INEFFECTIVE [None]
  - ECZEMA [None]
  - HYPOAESTHESIA [None]
  - ISCHAEMIA [None]
  - PAIN [None]
  - THROMBOSIS [None]
